FAERS Safety Report 9322129 (Version 2)
Quarter: 2013Q3

REPORT INFORMATION
  Report Type: Spontaneous
  Country: DE (occurrence: None)
  Receive Date: 20130529
  Receipt Date: 20130716
  Transmission Date: 20140515
  Serious: Yes (Hospitalization)
  Sender: FDA-Public Use
  Company Number: 1305-673

PATIENT
  Age: 86 Year
  Sex: Male

DRUGS (2)
  1. EYLEA [Suspect]
     Indication: AGE-RELATED MACULAR DEGENERATION
     Route: 031
     Dates: start: 20130320, end: 20130320
  2. LUCENTIS (RANIBIZUMAB) (INJECTION) [Concomitant]

REACTIONS (2)
  - Hypertension [None]
  - Dizziness [None]
